FAERS Safety Report 19053171 (Version 2)
Quarter: 2021Q1

REPORT INFORMATION
  Report Type: Report from Study
  Country: BR (occurrence: BR)
  Receive Date: 20210324
  Receipt Date: 20210330
  Transmission Date: 20210420
  Serious: Yes (Other)
  Sender: FDA-Public Use
  Company Number: NVSC2020BR334988

PATIENT
  Age: 29 Year
  Sex: Female
  Weight: 55 kg

DRUGS (3)
  1. COSENTYX [Suspect]
     Active Substance: SECUKINUMAB
     Dosage: 300 MG, QMO
     Route: 065
     Dates: end: 20201208
  2. COSENTYX [Suspect]
     Active Substance: SECUKINUMAB
     Indication: ANKYLOSING SPONDYLITIS
     Dosage: 150 MG, QW (FOR 5 WEEKS)
     Route: 058
     Dates: start: 20200812
  3. COSENTYX [Suspect]
     Active Substance: SECUKINUMAB
     Dosage: 150 MG, QMO
     Route: 058

REACTIONS (19)
  - Pain [Unknown]
  - Asthenia [Recovered/Resolved]
  - Abdominal pain [Unknown]
  - Ankylosing spondylitis [Unknown]
  - Rheumatic disorder [Unknown]
  - Pain [Recovered/Resolved]
  - Drug ineffective [Unknown]
  - Inappropriate schedule of product administration [Unknown]
  - Arthralgia [Unknown]
  - Gait disturbance [Unknown]
  - Malaise [Recovered/Resolved]
  - Decreased appetite [Unknown]
  - Shock [Unknown]
  - Asthenia [Unknown]
  - Influenza [Recovered/Resolved]
  - Dizziness [Unknown]
  - Decreased immune responsiveness [Unknown]
  - Abdominal discomfort [Unknown]
  - SARS-CoV-2 test positive [Recovered/Resolved with Sequelae]

NARRATIVE: CASE EVENT DATE: 20200812
